FAERS Safety Report 8790979 (Version 1)
Quarter: 2012Q4

REPORT INFORMATION
  Report Type: Spontaneous
  Country: US (occurrence: None)
  Receive Date: 20120907
  Receipt Date: 20120907
  Transmission Date: 20130627
  Serious: Yes (Hospitalization)
  Sender: FDA-Public Use
  Company Number: AUR-APL-2012-03784

PATIENT
  Age: 35 Year
  Sex: Female
  Weight: 54.42 kg

DRUGS (5)
  1. VENLAFAXINE [Suspect]
     Indication: SLEEP PROBLEM
     Dosage: 75 mg, 1in 1 D)
     Dates: start: 200910
  2. VENLAFAXINE [Suspect]
     Indication: ANXIETY
     Dosage: 75 mg, 1in 1 D)
     Dates: start: 200910
  3. AMBIEN [Suspect]
     Indication: SLEEP PROBLEM
     Dosage: 1 in 1 d
  4. KLONOPIN [Suspect]
     Indication: SLEEP PROBLEM
  5. SEROQUEL [Suspect]
     Dosage: as required)

REACTIONS (3)
  - Temperature intolerance [None]
  - Mental disorder [None]
  - Memory impairment [None]
